FAERS Safety Report 8023441-2 (Version None)
Quarter: 2012Q1

REPORT INFORMATION
  Report Type: 
  Country: None (occurrence: None)
  Receive Date: 20120105
  Receipt Date: 20111227
  Transmission Date: 20120608
  Serious: Yes (Hospitalization, Other)
  Sender: FDA-Public Use
  Company Number: FR-BIOGENIDEC-2011BI044787

PATIENT
  Age: 50 Year
  Sex: Female

DRUGS (6)
  1. TYSABRI [Suspect]
     Indication: MULTIPLE SCLEROSIS
     Route: 042
     Dates: start: 20070920
  2. LAMICTAL [Concomitant]
     Dates: start: 20050112
  3. LIORESAL [Concomitant]
     Dates: start: 20060920
  4. IXEL [Concomitant]
     Dates: start: 20100427
  5. LYRICA [Concomitant]
     Dates: start: 20070227
  6. CLONAZEPAM [Concomitant]
     Dates: start: 20050112

REACTIONS (1)
  - BORDERLINE OVARIAN TUMOUR [None]
